FAERS Safety Report 25897812 (Version 1)
Quarter: 2025Q4

REPORT INFORMATION
  Report Type: Spontaneous
  Country: JP (occurrence: JP)
  Receive Date: 20251008
  Receipt Date: 20251008
  Transmission Date: 20260118
  Serious: Yes (Hospitalization)
  Sender: NOVO NORDISK
  Company Number: JP-NOVOPROD-1533632

PATIENT
  Age: 76 Year
  Sex: Male

DRUGS (1)
  1. SOGROYA [Suspect]
     Active Substance: SOMAPACITAN-BECO
     Indication: Product used for unknown indication
     Dosage: 5 MG
     Route: 058

REACTIONS (1)
  - Physical deconditioning [Unknown]
